FAERS Safety Report 8078357-2 (Version None)
Quarter: 2012Q1

REPORT INFORMATION
  Report Type: 
  Country: None (occurrence: None)
  Receive Date: 20120127
  Receipt Date: 20110221
  Transmission Date: 20120608
  Serious: Yes (Other)
  Sender: FDA-Public Use
  Company Number: US-ABBOTT-10P-163-0622769-00

PATIENT
  Sex: Male
  Weight: 88.53 kg

DRUGS (4)
  1. HUMIRA [Suspect]
     Indication: PSORIATIC ARTHROPATHY
     Dates: start: 20090101
  2. HUMIRA [Suspect]
     Indication: PSORIASIS
  3. ACCUPRIL [Concomitant]
     Indication: HYPERTENSION
  4. VERAPAMIL [Concomitant]
     Indication: HYPERTENSION

REACTIONS (7)
  - GAIT DISTURBANCE [None]
  - TREATMENT NONCOMPLIANCE [None]
  - PAIN IN EXTREMITY [None]
  - ARTHRALGIA [None]
  - DRUG DOSE OMISSION [None]
  - OEDEMA PERIPHERAL [None]
  - SKIN CANCER [None]
